FAERS Safety Report 20988441 (Version 1)
Quarter: 2022Q2

REPORT INFORMATION
  Report Type: Spontaneous
  Country: DE (occurrence: DE)
  Receive Date: 20220621
  Receipt Date: 20220621
  Transmission Date: 20220721
  Serious: Yes (Other)
  Sender: FDA-Public Use
  Company Number: DE-ELI_LILLY_AND_COMPANY-DE202206004814

PATIENT
  Age: 34 Year
  Sex: Female

DRUGS (2)
  1. OLUMIANT [Suspect]
     Active Substance: BARICITINIB
     Indication: Dermatitis atopic
     Dosage: 2 MG, UNKNOWN
     Route: 048
     Dates: start: 202203, end: 202205
  2. BETULA PENDULA POLLEN [Concomitant]
     Active Substance: BETULA PENDULA POLLEN
     Indication: Product used for unknown indication

REACTIONS (1)
  - Venous thrombosis [Unknown]
